FAERS Safety Report 4658024-5 (Version None)
Quarter: 2005Q2

REPORT INFORMATION
  Report Type: 
  Country: None (occurrence: None)
  Receive Date: 20050510
  Receipt Date: 20050502
  Transmission Date: 20051028
  Serious: Yes (Hospitalization)
  Sender: FDA-Public Use
  Company Number: DE-MERCK-0505DEU00004

PATIENT
  Age: 57 Year
  Sex: Female

DRUGS (2)
  1. MAXALT [Suspect]
     Indication: MIGRAINE
     Route: 048
     Dates: start: 20041226, end: 20041227
  2. MAXALT [Suspect]
     Route: 048
     Dates: start: 20040101, end: 20050101

REACTIONS (3)
  - HAEMATOMA [None]
  - PETECHIAE [None]
  - THROMBOCYTOPENIA [None]
